FAERS Safety Report 13009270 (Version 5)
Quarter: 2017Q2

REPORT INFORMATION
  Report Type: Report from Study
  Country: DE (occurrence: DE)
  Receive Date: 20161208
  Receipt Date: 20170407
  Transmission Date: 20170830
  Serious: Yes (Hospitalization)
  Sender: FDA-Public Use
  Company Number: DE-SA-2016SA091897

PATIENT
  Age: 29 Year
  Sex: Female

DRUGS (1)
  1. LEMTRADA [Suspect]
     Active Substance: ALEMTUZUMAB
     Indication: MULTIPLE SCLEROSIS
     Route: 041
     Dates: start: 20160216

REACTIONS (13)
  - Viral upper respiratory tract infection [Recovered/Resolved]
  - Menorrhagia [Recovered/Resolved]
  - Amenorrhoea [Not Recovered/Not Resolved]
  - Pain [Unknown]
  - Haemoptysis [Recovered/Resolved]
  - Infusion related reaction [Unknown]
  - Pain in extremity [Unknown]
  - Herpes zoster [Unknown]
  - Haematoma [Unknown]
  - Malaise [Unknown]
  - Paraesthesia [Unknown]
  - Epilepsy [Unknown]
  - Pruritus [Not Recovered/Not Resolved]

NARRATIVE: CASE EVENT DATE: 2016
